FAERS Safety Report 17472891 (Version 1)
Quarter: 2020Q1

REPORT INFORMATION
  Report Type: Spontaneous
  Country: US (occurrence: US)
  Receive Date: 20200228
  Receipt Date: 20200228
  Transmission Date: 20200409
  Serious: No
  Sender: FDA-Public Use
  Company Number: US-MYLANLABS-2020M1019388

PATIENT
  Sex: Female
  Weight: 80 kg

DRUGS (3)
  1. PROCTOFOAM HC [Suspect]
     Active Substance: HYDROCORTISONE ACETATE\PRAMOXINE HYDROCHLORIDE
     Indication: HAEMORRHOIDS
     Dosage: TWICE A DAY (FOR 3 DAYS)
     Route: 054
     Dates: start: 2020
  2. PREPARATION H HYDROCORTISONE [Concomitant]
     Active Substance: HYDROCORTISONE
     Dosage: UNK
  3. WITCH HAZEL                        /01376402/ [Concomitant]

REACTIONS (6)
  - Haemorrhoids [Not Recovered/Not Resolved]
  - Burning sensation [Not Recovered/Not Resolved]
  - Pain [Not Recovered/Not Resolved]
  - Drug ineffective [Not Recovered/Not Resolved]
  - Product use complaint [Unknown]
  - Product label issue [Unknown]

NARRATIVE: CASE EVENT DATE: 2020
